FAERS Safety Report 4753567-8 (Version None)
Quarter: 2005Q3

REPORT INFORMATION
  Report Type: 
  Country: None (occurrence: None)
  Receive Date: 20050824
  Receipt Date: 20050812
  Transmission Date: 20060218
  Serious: Yes (Life-Threatening, Hospitalization, Disabling, Other)
  Sender: FDA-Public Use
  Company Number: 2005103122

PATIENT
  Age: 73 Year
  Sex: Male

DRUGS (27)
  1. LYRICA [Suspect]
     Indication: POLYNEUROPATHY
     Dosage: 75 MG(75 MG, 1 IN 1 D), ORAL
     Route: 048
     Dates: start: 20050606, end: 20050615
  2. ISMN ^GENERICON^ (ISOSORBIDE MONONIRATE) [Concomitant]
  3. HARZOL (SITOSTEROLS) [Concomitant]
  4. SPIRONOLACTONE [Concomitant]
  5. FUROSEMIDE [Concomitant]
  6. ACETYLSALICYLIC ACID SRT [Concomitant]
  7. CAPTOPRIL [Concomitant]
  8. MARCUMAR [Concomitant]
  9. METFORMIN HCL [Concomitant]
  10. NAC ^ALIUD PHARMA^ (ACETYLCYSTEINE) [Concomitant]
  11. SPIRIVA (PFIZER^ (TIOTROPIUM BROMIDE) [Concomitant]
  12. CODIPRONT (CODEINE, PHENYLTOLOXAMINE) [Concomitant]
  13. OTIX (DEXAMETHASONE, DEXAMETHASONE PHOSPHATE, POLYMYXIN B, POLYMYXIN B [Concomitant]
  14. LIPOIC ACID (THIOCTIC ACID) [Concomitant]
  15. GAAPENTIN (GABAPENTIN) [Concomitant]
  16. ESOMEPRAZOLE (ESOMEPRAZOLE) [Concomitant]
  17. ATORVASTATIN CALCIUM [Concomitant]
  18. ACETYLCYSTEINE [Concomitant]
  19. TORSEMIDE [Concomitant]
  20. XIPAMIDE (XIPAMIDE) [Concomitant]
  21. K CL TAB [Concomitant]
  22. DOXEPIN HCL [Concomitant]
  23. VALORON ^PARKE-DAVIS^ (TILIDINE HYDROCHLORIDE) [Interacting]
  24. NOVALGIN (METAMIZOLE SODIUM) [Concomitant]
  25. MOVICOL (MACROGOL, POTASSIUM CHLORIDE, SODIUM BICARBONATE, SODUM CHLOR [Concomitant]
  26. CLOPIDOGREL BISULFATE [Concomitant]
  27. LACTULOSE [Concomitant]

REACTIONS (8)
  - ACUTE MYOCARDIAL INFARCTION [None]
  - BLOOD CREATINE PHOSPHOKINASE INCREASED [None]
  - CORONARY ARTERY ATHEROSCLEROSIS [None]
  - CORONARY ARTERY STENOSIS [None]
  - LONG QT SYNDROME [None]
  - MENTAL DISORDER DUE TO A GENERAL MEDICAL CONDITION [None]
  - RENAL FAILURE ACUTE [None]
  - VENTRICULAR FIBRILLATION [None]
